FAERS Safety Report 9853020 (Version 1)
Quarter: 2014Q1

REPORT INFORMATION
  Report Type: Spontaneous
  Country: US (occurrence: None)
  Receive Date: 20140128
  Receipt Date: 20140128
  Transmission Date: 20141002
  Serious: No
  Sender: FDA-Public Use
  Company Number: None

PATIENT
  Age: 60 Year
  Sex: Female

DRUGS (1)
  1. ORENCIA [Suspect]
     Route: 058
     Dates: start: 20131011, end: 20140126

REACTIONS (3)
  - Nausea [None]
  - Pruritus generalised [None]
  - Rash macular [None]
